FAERS Safety Report 9733425 (Version 2)
Quarter: 2014Q2

REPORT INFORMATION
  Report Type: Spontaneous
  Country: US (occurrence: US)
  Receive Date: 20131205
  Receipt Date: 20140519
  Transmission Date: 20141212
  Serious: Yes (Life-Threatening, Disabling)
  Sender: FDA-Public Use
  Company Number: US-BAYER-2013-147223

PATIENT
  Age: 44 Year
  Sex: Female

DRUGS (15)
  1. YAZ [Suspect]
  2. YASMIN [Suspect]
     Indication: MENORRHAGIA
  3. OCELLA [Suspect]
  4. BEYAZ [Suspect]
  5. GIANVI [Suspect]
  6. SAFYRAL [Suspect]
  7. ZARAH [Suspect]
  8. TENORMIN [Concomitant]
     Dosage: 50 ONCE A DAY
     Dates: start: 20020828
  9. FLONASE [Concomitant]
     Dosage: UNK
     Dates: start: 20020828
  10. PRILOSEC [Concomitant]
     Dosage: UNK
     Dates: start: 20020828
  11. CELEXA [Concomitant]
     Dosage: UNK
     Dates: start: 20020828
  12. TIAZAC [Concomitant]
     Dosage: UNK
     Dates: start: 20020828
  13. POTASSIUM [Concomitant]
     Dosage: UNK
     Dates: start: 20020828
  14. HYZAAR [Concomitant]
     Dosage: UNK
     Dates: start: 20020828
  15. CALCIUM [Concomitant]
     Dosage: UNK
     Dates: start: 20020828

REACTIONS (8)
  - Deep vein thrombosis [Recovered/Resolved]
  - Injury [Recovered/Resolved]
  - Emotional distress [None]
  - Anhedonia [None]
  - Anxiety [None]
  - General physical health deterioration [Recovered/Resolved]
  - Pain [Recovered/Resolved]
  - Pain [None]
